FAERS Safety Report 12881865 (Version 4)
Quarter: 2016Q4

REPORT INFORMATION
  Report Type: Spontaneous
  Country: BR (occurrence: BR)
  Receive Date: 20161025
  Receipt Date: 20161102
  Transmission Date: 20170207
  Serious: Yes (Other)
  Sender: FDA-Public Use
  Company Number: BR-009507513-1610BRA012501

PATIENT
  Age: 38 Year
  Sex: Female
  Weight: 70 kg

DRUGS (2)
  1. DAPTOMYCIN. [Suspect]
     Active Substance: DAPTOMYCIN
     Dosage: 1 DF, QD
     Route: 042
     Dates: start: 20160922
  2. DAPTOMYCIN. [Suspect]
     Active Substance: DAPTOMYCIN
     Indication: OSTEOMYELITIS
     Dosage: 1 DF, QD
     Route: 042
     Dates: start: 20160922

REACTIONS (3)
  - Staphylococcal infection [Not Recovered/Not Resolved]
  - Procedural complication [Unknown]
  - Product use issue [Unknown]

NARRATIVE: CASE EVENT DATE: 2016
